FAERS Safety Report 9399039 (Version 1)
Quarter: 2013Q3

REPORT INFORMATION
  Report Type: Report from Study
  Country: US (occurrence: US)
  Receive Date: 20130715
  Receipt Date: 20130715
  Transmission Date: 20140515
  Serious: Yes (Other)
  Sender: FDA-Public Use
  Company Number: US-ROCHE-1247195

PATIENT
  Sex: 0

DRUGS (14)
  1. CAPECITABINE [Suspect]
     Indication: NEOPLASM MALIGNANT
     Route: 065
  2. TRASTUZUMAB [Suspect]
     Indication: NEOPLASM MALIGNANT
     Route: 065
  3. RITUXIMAB [Suspect]
     Indication: NEOPLASM MALIGNANT
     Route: 065
  4. OXALIPLATIN [Suspect]
     Indication: NEOPLASM MALIGNANT
     Route: 065
  5. DOCETAXEL [Suspect]
     Indication: NEOPLASM MALIGNANT
     Route: 065
  6. CYCLOPHOSPHAMIDE [Suspect]
     Indication: NEOPLASM MALIGNANT
     Route: 065
  7. DOXORUBICIN [Suspect]
     Indication: NEOPLASM MALIGNANT
     Route: 065
  8. EPIRUBICIN [Suspect]
     Indication: NEOPLASM MALIGNANT
     Route: 065
  9. VINCRISTINE [Suspect]
     Indication: NEOPLASM MALIGNANT
     Route: 065
  10. PREDNISONE [Suspect]
     Indication: NEOPLASM MALIGNANT
     Route: 065
  11. ETOPOSIDE [Suspect]
     Indication: NEOPLASM MALIGNANT
     Route: 065
  12. METHOTREXATE [Suspect]
     Indication: NEOPLASM MALIGNANT
     Route: 065
  13. FLUDARABINE [Suspect]
     Indication: NEOPLASM MALIGNANT
     Route: 065
  14. BENDAMUSTINE [Suspect]
     Indication: NEOPLASM MALIGNANT
     Route: 065

REACTIONS (1)
  - Haematotoxicity [Unknown]
